FAERS Safety Report 7806219-1 (Version None)
Quarter: 2011Q4

REPORT INFORMATION
  Report Type: 
  Country: None (occurrence: None)
  Receive Date: 20111011
  Receipt Date: 20110928
  Transmission Date: 20120403
  Serious: Yes (Other)
  Sender: FDA-Public Use
  Company Number: JP-PFIZER INC-2011238508

PATIENT
  Age: 74 Year
  Sex: Female
  Weight: 53.1 kg

DRUGS (3)
  1. ATORVASTATIN CALCIUM [Suspect]
     Indication: HYPERCHOLESTEROLAEMIA
     Dosage: 10 MG, 1X/DAY
     Route: 048
     Dates: start: 20110328
  2. NORVASC [Suspect]
     Indication: HYPERTENSION
     Dosage: 2.5 MG, DAILY
     Route: 048
     Dates: start: 20110311, end: 20110329
  3. CARVEDILOL [Concomitant]
     Dosage: UNK
     Route: 048
     Dates: start: 20110329, end: 20110415

REACTIONS (1)
  - CHEST PAIN [None]
